FAERS Safety Report 4876508-1 (Version None)
Quarter: 2006Q1

REPORT INFORMATION
  Report Type: 
  Country: None (occurrence: None)
  Receive Date: 20060110
  Receipt Date: 20060104
  Transmission Date: 20060701
  Serious: Yes (Hospitalization, Other)
  Sender: FDA-Public Use
  Company Number: US-GLAXOSMITHKLINE-A0587737A

PATIENT
  Sex: Male

DRUGS (6)
  1. WELLBUTRIN [Suspect]
     Indication: DEPRESSION
     Dosage: 150MG PER DAY
     Route: 048
     Dates: start: 20050301, end: 20051209
  2. WELLBUTRIN [Suspect]
     Dosage: 100MG PER DAY
     Route: 048
     Dates: start: 20051209
  3. PLAVIX [Concomitant]
  4. HYDROCHLOROTHIAZID [Concomitant]
  5. ZOCOR [Concomitant]
  6. NORVASC [Concomitant]

REACTIONS (4)
  - ASTHENIA [None]
  - BLOOD PRESSURE INCREASED [None]
  - CEREBROVASCULAR ACCIDENT [None]
  - HEADACHE [None]
